FAERS Safety Report 18386541 (Version 1)
Quarter: 2020Q4

REPORT INFORMATION
  Report Type: Spontaneous
  Country: US (occurrence: US)
  Receive Date: 20201015
  Receipt Date: 20201015
  Transmission Date: 20210114
  Serious: No
  Sender: FDA-Public Use
  Company Number: US-SA-2020SA288267

PATIENT

DRUGS (7)
  1. DUPIXENT [Suspect]
     Active Substance: DUPILUMAB
     Indication: DERMATITIS ATOPIC
     Dosage: 300 MG, QOW
     Route: 058
     Dates: start: 202009
  2. TRIAMCINOLONE [Concomitant]
     Active Substance: TRIAMCINOLONE
     Dosage: UNK
  3. DUPIXENT [Suspect]
     Active Substance: DUPILUMAB
     Indication: PRURITUS
  4. IBUPROFEN. [Concomitant]
     Active Substance: IBUPROFEN
     Dosage: UNK
  5. DUPIXENT [Suspect]
     Active Substance: DUPILUMAB
     Indication: PIGMENTATION DISORDER
  6. DUPIXENT [Suspect]
     Active Substance: DUPILUMAB
     Indication: ILLNESS
  7. EUCRISA [Concomitant]
     Active Substance: CRISABOROLE
     Dosage: UNK

REACTIONS (8)
  - Product use in unapproved indication [Unknown]
  - Sleep disorder [Unknown]
  - Dry skin [Unknown]
  - Skin haemorrhage [Unknown]
  - Rebound eczema [Unknown]
  - Product dose omission issue [Unknown]
  - Skin exfoliation [Unknown]
  - Pruritus [Unknown]

NARRATIVE: CASE EVENT DATE: 2020
